FAERS Safety Report 6308443-6 (Version None)
Quarter: 2009Q3

REPORT INFORMATION
  Report Type: 
  Country: None (occurrence: None)
  Receive Date: 20090813
  Receipt Date: 20090803
  Transmission Date: 20100115
  Serious: Yes (Other)
  Sender: FDA-Public Use
  Company Number: PHHY2009NL32121

PATIENT
  Sex: Male

DRUGS (5)
  1. NEORAL [Suspect]
     Indication: LYMPHOPROLIFERATIVE DISORDER
     Dosage: 100 MG, TID
     Route: 048
     Dates: start: 19950919, end: 19951119
  2. NEORAL [Suspect]
     Indication: GASTRITIS
  3. ZYLORIC [Concomitant]
     Dosage: 300 MG/DAY
  4. ZYLORIC [Concomitant]
     Dosage: 200 MG, QD
     Route: 048
     Dates: start: 19940701
  5. DIDROKIT [Concomitant]
     Dosage: ONCE DAILY
     Dates: start: 19950427

REACTIONS (3)
  - RECTAL POLYP [None]
  - RECTAL POLYPECTOMY [None]
  - SKIN PAPILLOMA [None]
